FAERS Safety Report 16165363 (Version 2)
Quarter: 2019Q2

REPORT INFORMATION
  Report Type: Report from Study
  Country: US (occurrence: US)
  Receive Date: 20190405
  Receipt Date: 20190410
  Transmission Date: 20190711
  Serious: No
  Sender: FDA-Public Use
  Company Number: PHEH2019US014314

PATIENT
  Sex: Female
  Weight: 77.55 kg

DRUGS (2)
  1. COSENTYX [Suspect]
     Active Substance: SECUKINUMAB
     Dosage: 150 MG, Q2W
     Route: 058
     Dates: start: 20190319
  2. COSENTYX [Suspect]
     Active Substance: SECUKINUMAB
     Indication: PSORIATIC ARTHROPATHY
     Dosage: 300 MG, QMO (EVERY 4 WEEKS)
     Route: 058
     Dates: start: 201712, end: 20190319

REACTIONS (3)
  - Upper respiratory tract infection [Unknown]
  - Therapeutic response shortened [Unknown]
  - Foot fracture [Unknown]

NARRATIVE: CASE EVENT DATE: 201802
